FAERS Safety Report 10289091 (Version 13)
Quarter: 2019Q3

REPORT INFORMATION
  Report Type: Report from Study
  Country: CA (occurrence: CA)
  Receive Date: 20140710
  Receipt Date: 20190724
  Transmission Date: 20191004
  Serious: Yes (Other)
  Sender: FDA-Public Use
  Company Number: CA-ROCHE-1432526

PATIENT
  Age: 53 Year
  Sex: Female
  Weight: 86.2 kg

DRUGS (24)
  1. RITUXAN [Suspect]
     Active Substance: RITUXIMAB
     Dosage: LAST DOSE: 24/SEP/2015
     Route: 042
     Dates: start: 20150910
  2. RAMIPRIL. [Concomitant]
     Active Substance: RAMIPRIL
     Indication: BLOOD PRESSURE MEASUREMENT
  3. PROLIA [Concomitant]
     Active Substance: DENOSUMAB
     Indication: OSTEOARTHRITIS
     Route: 058
  4. OMNARIS [Concomitant]
     Active Substance: CICLESONIDE
     Dosage: 2 SPRAY(S) ONCE DAILY FOR 90 DAYS
     Route: 065
  5. CIPROFLOXACIN. [Concomitant]
     Active Substance: CIPROFLOXACIN
     Route: 048
  6. SINGULAIR [Concomitant]
     Active Substance: MONTELUKAST SODIUM
     Route: 048
  7. NIFEDIPINE. [Concomitant]
     Active Substance: NIFEDIPINE
  8. REACTINE [CETIRIZINE HYDROCHLORIDE] [Concomitant]
     Active Substance: CETIRIZINE HYDROCHLORIDE
     Indication: PREMEDICATION
     Route: 048
     Dates: start: 20130501
  9. RAMIPRIL. [Concomitant]
     Active Substance: RAMIPRIL
     Route: 048
  10. RITUXAN [Suspect]
     Active Substance: RITUXIMAB
     Dosage: 01/FEB/2018, RECENT DOSE
     Route: 042
     Dates: start: 20170706
  11. ACETAMINOPHEN. [Concomitant]
     Active Substance: ACETAMINOPHEN
     Indication: PREMEDICATION
     Route: 048
     Dates: start: 20130501
  12. RITUXAN [Suspect]
     Active Substance: RITUXIMAB
     Indication: RHEUMATOID ARTHRITIS
     Dosage: FREQUENCY: DAY 1 AND DAY 15
     Route: 042
     Dates: start: 20130501
  13. GELNIQUE [Concomitant]
     Active Substance: OXYBUTYNIN
     Indication: CYSTITIS
  14. MYRBETRIQ [Concomitant]
     Active Substance: MIRABEGRON
  15. METOPROLOL TARTRATE. [Concomitant]
     Active Substance: METOPROLOL TARTRATE
     Route: 048
  16. XYLOCAINE [Suspect]
     Active Substance: LIDOCAINE HYDROCHLORIDE
     Indication: PRODUCT USED FOR UNKNOWN INDICATION
     Route: 065
     Dates: start: 20140320
  17. PREDNISONE. [Concomitant]
     Active Substance: PREDNISONE
     Dosage: 9.5 TABLETS ONCE DAILY X 1 MONTH THEN 9 TABLETS ONCE DAILY FOR MONTH THEN 8.5 TABLETS ONCE DAILY FOR
     Route: 048
  18. METHYLPREDNISOLONE. [Concomitant]
     Active Substance: METHYLPREDNISOLONE
     Indication: PREMEDICATION
     Route: 042
     Dates: start: 20130501
  19. LIDOCAINE HCL [Concomitant]
     Active Substance: LIDOCAINE HYDROCHLORIDE
     Dosage: MG/ML (2%), VIAL
     Route: 065
  20. SALAGEN [Concomitant]
     Active Substance: PILOCARPINE HYDROCHLORIDE
  21. RABEPRAZOLE [Concomitant]
     Active Substance: RABEPRAZOLE
  22. MSM [METHYLSULFONYLMETHANE] [Concomitant]
  23. DEPO-MEDROL [Suspect]
     Active Substance: METHYLPREDNISOLONE ACETATE
     Indication: PRODUCT USED FOR UNKNOWN INDICATION
     Dosage: VIAL,
     Route: 065
     Dates: start: 20140320
  24. REACTINE [CETIRIZINE HYDROCHLORIDE] [Concomitant]
     Active Substance: CETIRIZINE HYDROCHLORIDE
     Dosage: 0.5-1 TABLET EVERY DAY AT BED TIME FOR 90 DAYS
     Route: 065

REACTIONS (27)
  - Arthralgia [Unknown]
  - Weight increased [Unknown]
  - Arthritis [Recovering/Resolving]
  - Poor quality sleep [Unknown]
  - Musculoskeletal disorder [Unknown]
  - Hepatitis B core antibody positive [Unknown]
  - Hepatitis B virus test positive [Unknown]
  - Pain [Unknown]
  - Fatigue [Unknown]
  - Blood cholesterol increased [Not Recovered/Not Resolved]
  - Open fracture [Unknown]
  - Joint instability [Recovering/Resolving]
  - Osteopenia [Unknown]
  - Fall [Unknown]
  - Burning sensation [Unknown]
  - Bone pain [Unknown]
  - Sinusitis [Unknown]
  - Back pain [Not Recovered/Not Resolved]
  - Arthropathy [Unknown]
  - Urinary incontinence [Unknown]
  - Osteoarthritis [Unknown]
  - Nerve injury [Not Recovered/Not Resolved]
  - Therapeutic product effect decreased [Unknown]
  - Joint swelling [Unknown]
  - Diabetes mellitus [Not Recovered/Not Resolved]
  - Synovitis [Unknown]
  - Cystitis [Unknown]

NARRATIVE: CASE EVENT DATE: 201308
